FAERS Safety Report 4815012-3 (Version None)
Quarter: 2005Q4

REPORT INFORMATION
  Report Type: 
  Country: None (occurrence: None)
  Receive Date: 20051026
  Receipt Date: 20051010
  Transmission Date: 20060501
  Serious: Yes (Hospitalization, Other)
  Sender: FDA-Public Use
  Company Number: US_0409106020

PATIENT
  Sex: 0
  Weight: 77 kg

DRUGS (9)
  1. ZYPREXA [Suspect]
     Indication: SCHIZOPHRENIA
     Dosage: 12.5 MG/2 DAY
     Dates: start: 19990401, end: 20040801
  2. CLONAZEPAM [Concomitant]
  3. OXCARBAZEPINE [Concomitant]
  4. MONOPRIL [Concomitant]
  5. LOPID [Concomitant]
  6. VICODIN [Concomitant]
  7. ATIVAN [Concomitant]
  8. ASPIRIN [Concomitant]
  9. XANAX [Concomitant]

REACTIONS (26)
  - ABDOMINAL WALL ABSCESS [None]
  - ANXIETY [None]
  - BLOOD ALKALINE PHOSPHATASE INCREASED [None]
  - BLOOD SODIUM DECREASED [None]
  - BUNDLE BRANCH BLOCK LEFT [None]
  - BURSITIS [None]
  - DIABETES MELLITUS [None]
  - DIVERTICULUM DUODENAL [None]
  - EXTRASYSTOLES [None]
  - GLYCOSYLATED HAEMOGLOBIN INCREASED [None]
  - HEPATIC STEATOSIS [None]
  - HIATUS HERNIA [None]
  - HYPERTENSION [None]
  - HYPOGLYCAEMIA [None]
  - MEAN CELL HAEMOGLOBIN INCREASED [None]
  - MEAN CELL VOLUME INCREASED [None]
  - PANCREATIC CARCINOMA [None]
  - PANCREATIC CYST [None]
  - PANCREATIC MASS [None]
  - PANCREATITIS [None]
  - PLATELET COUNT INCREASED [None]
  - PULMONARY EMBOLISM [None]
  - RENAL CYST [None]
  - SCHIZOPHRENIA [None]
  - THROMBOCYTHAEMIA [None]
  - THROMBOSIS [None]
